FAERS Safety Report 10070585 (Version 4)
Quarter: 2015Q1

REPORT INFORMATION
  Report Type: Report from Study
  Country: MW (occurrence: MW)
  Receive Date: 20140410
  Receipt Date: 20150123
  Transmission Date: 20150720
  Serious: Yes (Hospitalization, Other)
  Sender: FDA-Public Use
  Company Number: MW-BRISTOL-MYERS SQUIBB COMPANY-20595633

PATIENT
  Age: 32 Year
  Sex: Male
  Weight: 65.8 kg

DRUGS (4)
  1. EMTRICITABINE/TENOFOVIR DISOPROXIL FUMARATE [Suspect]
     Active Substance: EMTRICITABINE\TENOFOVIR DISOPROXIL
     Indication: HIV INFECTION
     Dosage: 1 DF= 200/300 MG  LAST DOSE:26FEB14,DURATION:7DAY
     Route: 048
     Dates: start: 20140219
  2. EFAVIRENZ [Suspect]
     Active Substance: EFAVIRENZ
     Dosage: 600 MG, UNK
     Route: 065
     Dates: start: 20140219
  3. RIFAMPICIN + ISONIAZID + PYRAZINAMIDE + ETHAMBUTOL [Suspect]
     Active Substance: ETHAMBUTOL HYDROCHLORIDE\ISONIAZID\PYRAZINAMIDE\RIFAMPIN
     Indication: HIV INFECTION
     Dosage: 1 DF= 150/75/275/400 MG  LAST DOSE:26FEB14,DURATION:7DAY
     Route: 048
     Dates: start: 20140219
  4. RIFAMPICIN + ISONIAZID + PYRAZINAMIDE + ETHAMBUTOL [Suspect]
     Active Substance: ETHAMBUTOL HYDROCHLORIDE\ISONIAZID\PYRAZINAMIDE\RIFAMPIN
     Indication: TUBERCULOSIS

REACTIONS (3)
  - Bacterial sepsis [Recovered/Resolved]
  - Lymph node tuberculosis [Recovering/Resolving]
  - Anaemia [Unknown]

NARRATIVE: CASE EVENT DATE: 20140227
